FAERS Safety Report 20433313 (Version 1)
Quarter: 2022Q1

REPORT INFORMATION
  Report Type: Spontaneous
  Country: BR (occurrence: BR)
  Receive Date: 20220205
  Receipt Date: 20220205
  Transmission Date: 20220423
  Serious: Yes (Hospitalization, Other)
  Sender: FDA-Public Use
  Company Number: BR-SA-SAC20220201001022

PATIENT

DRUGS (1)
  1. ZOLPIDEM TARTRATE [Suspect]
     Active Substance: ZOLPIDEM TARTRATE
     Dosage: STILNOX 6.25MG, 10MG, 12.5MG
     Route: 048

REACTIONS (2)
  - Suicide attempt [Recovering/Resolving]
  - Intentional overdose [Unknown]
